FAERS Safety Report 4907267-1 (Version None)
Quarter: 2006Q1

REPORT INFORMATION
  Report Type: 
  Country: None (occurrence: None)
  Receive Date: 20060207
  Receipt Date: 20060123
  Transmission Date: 20060701
  Serious: Yes (Hospitalization)
  Sender: FDA-Public Use
  Company Number: 2006SS000002

PATIENT
  Age: 76 Year
  Sex: Female
  Weight: 55.7924 kg

DRUGS (8)
  1. MYOBLOC (BOTULINUM TOXIN TYPE B) [Suspect]
     Indication: TORTICOLLIS
     Dosage: SEE IMAGE
     Route: 030
     Dates: start: 20031001, end: 20031001
  2. MYOBLOC (BOTULINUM TOXIN TYPE B) [Suspect]
     Indication: TORTICOLLIS
     Dosage: SEE IMAGE
     Route: 030
     Dates: start: 20051005, end: 20051005
  3. MYOBLOC (BOTULINUM TOXIN TYPE B) [Suspect]
     Indication: TORTICOLLIS
     Dosage: SEE IMAGE
     Route: 030
     Dates: start: 20060124, end: 20060124
  4. ASPIRIN [Concomitant]
  5. .. [Concomitant]
  6. LESCOL [Concomitant]
  7. HYDROCHLOROTHIAZIDE [Concomitant]
  8. CLONAZEPAM [Concomitant]

REACTIONS (5)
  - CARDIAC DISORDER [None]
  - CARDIAC STRESS TEST ABNORMAL [None]
  - CORONARY ARTERY SURGERY [None]
  - DYSPNOEA [None]
  - FEELING ABNORMAL [None]
